FAERS Safety Report 15980635 (Version 5)
Quarter: 2019Q3

REPORT INFORMATION
  Report Type: Report from Study
  Country: US (occurrence: US)
  Receive Date: 20190219
  Receipt Date: 20190813
  Transmission Date: 20191004
  Serious: Yes (Life-Threatening, Hospitalization, Other)
  Sender: FDA-Public Use
  Company Number: PHHO2019US002011

PATIENT
  Age: 4 Year
  Sex: Male
  Weight: 16.9 kg

DRUGS (9)
  1. INC424A [Suspect]
     Active Substance: RUXOLITINIB
     Indication: ACUTE LYMPHOCYTIC LEUKAEMIA
     Dosage: 35 MG, BID ON DAYS (1-14 AND 29-42)
     Route: 048
     Dates: start: 20190109
  2. CYCLOPHOSPHAMIDE. [Suspect]
     Active Substance: CYCLOPHOSPHAMIDE
     Indication: ACUTE LYMPHOCYTIC LEUKAEMIA
     Dosage: 680 MG, OVER 30-60 MIN ON DAY 1/29
     Route: 042
     Dates: start: 20190109
  3. MERCAPTOPURINE. [Suspect]
     Active Substance: MERCAPTOPURINE
     Indication: ACUTE LYMPHOCYTIC LEUKAEMIA
     Dosage: 40 MG, ON DAYS 1-8
     Route: 048
     Dates: start: 20190109
  4. METHOTREXATE. [Suspect]
     Active Substance: METHOTREXATE
     Indication: ACUTE LYMPHOCYTIC LEUKAEMIA
     Dosage: 12 MG, ON DAYS 1,8,15 AND 22
     Route: 037
     Dates: start: 20190109
  5. PEGASPARGASE [Suspect]
     Active Substance: PEGASPARGASE
     Indication: ACUTE LYMPHOCYTIC LEUKAEMIA
     Dosage: 1675 IU, OVER 2 HOURS, ON DAYS 15, 43
     Route: 042
     Dates: start: 20190122, end: 20190122
  6. CYTARABINE. [Suspect]
     Active Substance: CYTARABINE
     Indication: ACUTE LYMPHOCYTIC LEUKAEMIA
     Dosage: 52 MG, OVER 1-30 MIN ON DAY 1-4/8-11/29-32/36-39
     Route: 042
     Dates: start: 20190109
  7. PEGASPARGASE [Suspect]
     Active Substance: PEGASPARGASE
     Dosage: 1650 INTERNATIONAL UNIT, OVER 2 HOURS, ON DAYS 15, 43
     Route: 042
     Dates: start: 20190122, end: 20190226
  8. MERCAPTOPURINE. [Suspect]
     Active Substance: MERCAPTOPURINE
     Dosage: 20 MG, ON DAYS 29-42
     Route: 048
     Dates: start: 20190212
  9. VINCRISTINE [Suspect]
     Active Substance: VINCRISTINE
     Indication: ACUTE LYMPHOCYTIC LEUKAEMIA
     Dosage: 1 MG, PUSH OVER 1MIN ON DAYS 15,22 AND 43
     Route: 042
     Dates: start: 20190122

REACTIONS (2)
  - Anaphylactic reaction [Recovered/Resolved]
  - Febrile neutropenia [Recovered/Resolved]

NARRATIVE: CASE EVENT DATE: 20190201
